FAERS Safety Report 12257006 (Version 1)
Quarter: 2016Q2

REPORT INFORMATION
  Report Type: Spontaneous
  Country: US (occurrence: None)
  Receive Date: 20160411
  Receipt Date: 20160411
  Transmission Date: 20160815
  Serious: No
  Sender: FDA-Public Use
  Company Number: None

PATIENT
  Age: 25 Year
  Sex: Female
  Weight: 61.24 kg

DRUGS (3)
  1. ZECUITY [Suspect]
     Active Substance: SUMATRIPTAN SUCCINATE
     Indication: MIGRAINE
     Dosage: 1 PATCH ONCE A DAY APPLIED AS MEDICATED PATCH TO SKIN
     Dates: start: 20160320, end: 20160320
  2. NUVARING [Concomitant]
     Active Substance: ETHINYL ESTRADIOL\ETONOGESTREL
  3. ZOLOFT [Concomitant]
     Active Substance: SERTRALINE HYDROCHLORIDE

REACTIONS (5)
  - Application site pain [None]
  - Application site rash [None]
  - Device leakage [None]
  - Product adhesion issue [None]
  - Accidental exposure to product [None]

NARRATIVE: CASE EVENT DATE: 20160320
